FAERS Safety Report 7835321-3 (Version None)
Quarter: 2011Q4

REPORT INFORMATION
  Report Type: 
  Country: None (occurrence: None)
  Receive Date: 20111024
  Receipt Date: 20111019
  Transmission Date: 20120403
  Serious: Yes (Hospitalization)
  Sender: FDA-Public Use
  Company Number: CZ-AMGEN-CZESP2011052656

PATIENT
  Age: 26 Year
  Sex: Male
  Weight: 66 kg

DRUGS (4)
  1. BLEOMYCIN SULFATE [Concomitant]
     Indication: TESTIS CANCER
     Dosage: UNK
     Dates: start: 20110812
  2. CISPLATIN [Concomitant]
     Indication: TESTIS CANCER
     Dosage: UNK
     Dates: start: 20110812
  3. NEULASTA [Suspect]
     Indication: CHEMOTHERAPY
     Dosage: 6 MG, UNK
     Route: 058
     Dates: start: 20111009
  4. ETOPOSIDE [Concomitant]
     Indication: TESTIS CANCER
     Dosage: UNK
     Dates: start: 20110812

REACTIONS (11)
  - ANXIETY [None]
  - DYSPNOEA [None]
  - VISUAL IMPAIRMENT [None]
  - LYMPHOCYTE COUNT INCREASED [None]
  - TOXIC SKIN ERUPTION [None]
  - RASH [None]
  - WHITE BLOOD CELL COUNT INCREASED [None]
  - BASOPHIL COUNT INCREASED [None]
  - OEDEMA MUCOSAL [None]
  - NEUTROPHIL COUNT INCREASED [None]
  - MONOCYTE COUNT INCREASED [None]
